FAERS Safety Report 9796583 (Version 1)
Quarter: 2014Q1

REPORT INFORMATION
  Report Type: Spontaneous
  Country: US (occurrence: US)
  Receive Date: 20140103
  Receipt Date: 20140103
  Transmission Date: 20141002
  Serious: No
  Sender: FDA-Public Use
  Company Number: US-009507513-1401USA000763

PATIENT
  Age: 42 Year
  Sex: Female

DRUGS (1)
  1. CLARITIN-D [Suspect]
     Indication: NASOPHARYNGITIS
     Dosage: UNK, UNKNOWN
     Route: 048
     Dates: start: 2013

REACTIONS (2)
  - Unevaluable event [Recovering/Resolving]
  - Drug effect decreased [Unknown]
